FAERS Safety Report 7023440-3 (Version None)
Quarter: 2010Q3

REPORT INFORMATION
  Report Type: 
  Country: None (occurrence: None)
  Receive Date: 20100929
  Receipt Date: 20100913
  Transmission Date: 20110219
  Serious: Yes (Disabling, Other)
  Sender: FDA-Public Use
  Company Number: ACO_02250_2010

PATIENT
  Sex: Female
  Weight: 53.5244 kg

DRUGS (4)
  1. AMPYRA [Suspect]
     Indication: MULTIPLE SCLEROSIS
     Dosage: 10 MG BID ORAL
     Route: 048
     Dates: start: 20100911, end: 20100913
  2. AMPYRA [Suspect]
     Indication: MUSCULAR WEAKNESS
     Dosage: 10 MG BID ORAL
     Route: 048
     Dates: start: 20100911, end: 20100913
  3. BETASERON [Concomitant]
  4. HYDROCODONE [Concomitant]

REACTIONS (6)
  - BALANCE DISORDER [None]
  - BLADDER PAIN [None]
  - BURNING SENSATION [None]
  - DIPLEGIA [None]
  - PARAESTHESIA [None]
  - SENSATION OF HEAVINESS [None]
